FAERS Safety Report 6267582-9 (Version None)
Quarter: 2009Q3

REPORT INFORMATION
  Report Type: 
  Country: None (occurrence: None)
  Receive Date: 20090710
  Receipt Date: 20090702
  Transmission Date: 20100115
  Serious: Yes (Hospitalization)
  Sender: FDA-Public Use
  Company Number: 09IL002341

PATIENT
  Sex: Male

DRUGS (1)
  1. DOXYLAMINE SUCCINATE 25 MG 441 (DOXYLAMINE SUCCINATE) TABLET [Suspect]
     Indication: SUICIDE ATTEMPT
     Dosage: 750 MG, SINGLE, ORAL
     Route: 048
     Dates: start: 20090630

REACTIONS (2)
  - INTENTIONAL OVERDOSE [None]
  - SUICIDE ATTEMPT [None]
